FAERS Safety Report 4618922-5 (Version None)
Quarter: 2005Q2

REPORT INFORMATION
  Report Type: 
  Country: None (occurrence: None)
  Receive Date: 20050310
  Receipt Date: 20030611
  Transmission Date: 20051028
  Serious: Yes (Hospitalization)
  Sender: FDA-Public Use
  Company Number: F03200300006

PATIENT
  Sex: Male

DRUGS (13)
  1. ELOXATIN [Suspect]
     Indication: COLON CANCER
     Dosage: 85 MG/M2 Q2W - INTRAVENOUS NOS
     Route: 042
     Dates: start: 20030520, end: 20030520
  2. TEZACITABINE - SOLUTION - UNIT DOSE : UNKNOWN [Suspect]
     Indication: COLON CANCER
     Dosage: 150 MG/M2 Q2W - INTRAVENOUS NOS
     Route: 042
     Dates: start: 20030520, end: 20030520
  3. ESOMEPRAZOLE [Concomitant]
  4. PSYLLIUM HYDROPHILIC MUCILLOID [Concomitant]
  5. CALCIUM GLUCONATE [Concomitant]
  6. ONDANSETRON HYDROCHLORIDE [Concomitant]
  7. CIPROFLOXACIN [Concomitant]
  8. ERGOCALCIFREOL, ASCORBIC ACID, PYRIDOXINE HYDROCHLORIDE, TOCOPHEROL, T [Concomitant]
  9. IRON SULFATETHIAMIN COMPOUND TAB [Concomitant]
  10. DEXAMETHASONE [Concomitant]
  11. TESTOSTERONE [Concomitant]
  12. PARACETAMOL [Concomitant]
  13. AOMIXICILLIN TRIHYDRATE, CLAVULANATE POTASSIUM [Concomitant]

REACTIONS (3)
  - NAUSEA [None]
  - PYREXIA [None]
  - VOMITING [None]
